FAERS Safety Report 6101184-X (Version None)
Quarter: 2009Q1

REPORT INFORMATION
  Report Type: 
  Country: None (occurrence: None)
  Receive Date: 20090224
  Receipt Date: 20090212
  Transmission Date: 20090719
  Serious: Yes (Other)
  Sender: FDA-Public Use
  Company Number: WSDF_00788

PATIENT
  Age: 4 Year
  Sex: Male
  Weight: 23 kg

DRUGS (1)
  1. WINRHO SDF [Suspect]
     Indication: IDIOPATHIC THROMBOCYTOPENIC PURPURA
     Dosage: 73.9 KG, ONCE , IV
     Route: 042
     Dates: start: 20090113, end: 20090113

REACTIONS (5)
  - EPSTEIN-BARR VIRUS ANTIBODY POSITIVE [None]
  - EVANS SYNDROME [None]
  - HAEMOGLOBIN DECREASED [None]
  - PYREXIA [None]
  - RETICULOCYTE COUNT INCREASED [None]
